FAERS Safety Report 10913162 (Version 1)
Quarter: 2015Q1

REPORT INFORMATION
  Report Type: Spontaneous
  Country: US (occurrence: None)
  Receive Date: 20150311
  Receipt Date: 20150311
  Transmission Date: 20150721
  Serious: Yes (Death)
  Sender: FDA-Public Use
  Company Number: None

PATIENT
  Age: 60 Year
  Sex: Male
  Weight: 99.79 kg

DRUGS (13)
  1. FLUOXETINE [Concomitant]
     Active Substance: FLUOXETINE\FLUOXETINE HYDROCHLORIDE
  2. LISINOPRIL. [Concomitant]
     Active Substance: LISINOPRIL
  3. SIMVASTATIN. [Concomitant]
     Active Substance: SIMVASTATIN
  4. TEMAZEPAM 22.5 MG AS NEEDED FOR SLEEP [Concomitant]
  5. ADDERALL [Concomitant]
     Active Substance: AMPHETAMINE ASPARTATE\AMPHETAMINE SULFATE\DEXTROAMPHETAMINE SACCHARATE\DEXTROAMPHETAMINE SULFATE
  6. ALLOPURIONOL [Concomitant]
  7. KLONOPIN [Concomitant]
     Active Substance: CLONAZEPAM
  8. AMLODIPINE [Concomitant]
     Active Substance: AMLODIPINE BESYLATE
  9. ASPIRIN. [Concomitant]
     Active Substance: ASPIRIN
  10. AMPHETAMINE MIXED SALTS [Suspect]
     Active Substance: AMPHETAMINE ASPARTATE\AMPHETAMINE SULFATE\DEXTROAMPHETAMINE SACCHARATE\DEXTROAMPHETAMINE SULFATE
     Indication: SLEEP DISORDER THERAPY
     Dosage: ONCE IN THE ARM
     Route: 048
     Dates: start: 20140923, end: 20141102
  11. C-PAP MACHINE [Concomitant]
     Active Substance: DEVICE
  12. VITAMIN D [Concomitant]
     Active Substance: CHOLECALCIFEROL
  13. CETIRIZINE [Concomitant]
     Active Substance: CETIRIZINE HYDROCHLORIDE

REACTIONS (14)
  - Pulmonary oedema [None]
  - Electrocardiogram abnormal [None]
  - Multi-organ failure [None]
  - Troponin increased [None]
  - Feeling abnormal [None]
  - Haemoptysis [None]
  - Chest X-ray abnormal [None]
  - Cardio-respiratory arrest [None]
  - Middle insomnia [None]
  - Computerised tomogram thorax abnormal [None]
  - Ejection fraction decreased [None]
  - Cardiomegaly [None]
  - Condition aggravated [None]
  - Dyspnoea [None]

NARRATIVE: CASE EVENT DATE: 20141104
